FAERS Safety Report 18164321 (Version 6)
Quarter: 2021Q1

REPORT INFORMATION
  Report Type: Report from Study
  Country: None (occurrence: CA)
  Receive Date: 20200818
  Receipt Date: 20210121
  Transmission Date: 20210419
  Serious: Yes (Hospitalization, Other)
  Sender: FDA-Public Use
  Company Number: CA-ABBVIE-20K-028-3483033-00

PATIENT
  Age: 58 Year
  Sex: Male

DRUGS (2)
  1. LUPRON [Suspect]
     Active Substance: LEUPROLIDE ACETATE
     Indication: PROSTATE CANCER
     Route: 030
     Dates: start: 20161001
  2. LUPRON [Suspect]
     Active Substance: LEUPROLIDE ACETATE
     Route: 030

REACTIONS (40)
  - Acute kidney injury [Unknown]
  - Vasculitis [Unknown]
  - Confusional state [Recovered/Resolved]
  - Anorectal discomfort [Unknown]
  - Spinal osteoarthritis [Unknown]
  - Hypertensive encephalopathy [Unknown]
  - Hepatic encephalopathy [Unknown]
  - Hepatic function abnormal [Unknown]
  - Abnormal behaviour [Unknown]
  - Gastritis erosive [Unknown]
  - Angiopathy [Unknown]
  - Illness [Unknown]
  - Alcohol abuse [Unknown]
  - Cerebrovascular accident [Unknown]
  - Haemorrhoids [Unknown]
  - Arthropathy [Unknown]
  - Ammonia increased [Unknown]
  - Large intestine polyp [Unknown]
  - Coagulopathy [Unknown]
  - Intracranial mass [Unknown]
  - Metastases to central nervous system [Recovering/Resolving]
  - Meningoencephalitis herpetic [Unknown]
  - Urosepsis [Recovering/Resolving]
  - Pulse abnormal [Unknown]
  - Injury [Unknown]
  - Chronic obstructive pulmonary disease [Unknown]
  - Anal incontinence [Unknown]
  - Cerebral haemorrhage [Recovering/Resolving]
  - Localised infection [Unknown]
  - Atrophy [Unknown]
  - Cerebellar atrophy [Unknown]
  - Central nervous system lesion [Unknown]
  - Pyrexia [Recovered/Resolved]
  - Cerebral amyloid angiopathy [Unknown]
  - Lymphocele [Unknown]
  - Gastritis alcoholic [Unknown]
  - Urinary tract infection [Recovered/Resolved]
  - Liver function test abnormal [Unknown]
  - Hypotension [Unknown]
  - Gamma-glutamyltransferase increased [Unknown]

NARRATIVE: CASE EVENT DATE: 202007
